FAERS Safety Report 5825756-2 (Version None)
Quarter: 2008Q3

REPORT INFORMATION
  Report Type: 
  Country: None (occurrence: None)
  Receive Date: 20080729
  Receipt Date: 20080722
  Transmission Date: 20090109
  Serious: Yes (Life-Threatening, Hospitalization, Disabling, Other)
  Sender: FDA-Public Use
  Company Number: US-MERCK-0807USA04423

PATIENT
  Age: 59 Year
  Sex: Female
  Weight: 77 kg

DRUGS (4)
  1. VYTORIN [Suspect]
     Indication: LIPIDS INCREASED
     Route: 048
     Dates: start: 20070301
  2. AMBIEN CR [Concomitant]
     Indication: HORMONE REPLACEMENT THERAPY
     Route: 065
     Dates: start: 20060101
  3. ESTRATEST [Concomitant]
     Indication: HYSTERECTOMY
     Route: 065
     Dates: start: 19980101, end: 20070101
  4. DELESTROGEN [Concomitant]
     Route: 030
     Dates: start: 20070101, end: 20080201

REACTIONS (1)
  - BREAST CANCER [None]
